FAERS Safety Report 9054864 (Version 1)
Quarter: 2013Q1

REPORT INFORMATION
  Report Type: Spontaneous
  Country: US (occurrence: US)
  Receive Date: 20130208
  Receipt Date: 20130208
  Transmission Date: 20140127
  Serious: Yes (Other)
  Sender: FDA-Public Use
  Company Number: US-FRI-1000042377

PATIENT
  Age: 41 Year
  Sex: Female

DRUGS (10)
  1. VIIBRYD [Suspect]
     Indication: DEPRESSION
     Dosage: 10 MG
     Route: 048
     Dates: start: 20130108, end: 20130114
  2. VIIBRYD [Suspect]
     Indication: BIPOLAR DISORDER
     Dosage: 20 MG
     Route: 048
     Dates: start: 20130115, end: 20130121
  3. VIIBRYD [Suspect]
     Indication: DEPRESSION
     Dosage: 40 MG
     Route: 048
     Dates: start: 20130122
  4. VIIBRYD [Suspect]
     Indication: BIPOLAR DISORDER
  5. SEROQUEL [Concomitant]
     Indication: BIPOLAR DISORDER
  6. TRILEPTAL [Concomitant]
     Indication: BIPOLAR DISORDER
  7. LITHIUM [Concomitant]
     Indication: BIPOLAR DISORDER
  8. BUSPAR [Concomitant]
     Indication: BIPOLAR DISORDER
  9. KEPPRA [Concomitant]
     Indication: CONVULSION
  10. PHENOBARBITAL [Concomitant]
     Indication: CONVULSION

REACTIONS (4)
  - Convulsion [Unknown]
  - Nausea [Unknown]
  - Vomiting [Unknown]
  - Diarrhoea [Unknown]
